FAERS Safety Report 4438259-7 (Version None)
Quarter: 2004Q3

REPORT INFORMATION
  Report Type: 
  Country: None (occurrence: None)
  Receive Date: 20040831
  Receipt Date: 20040630
  Transmission Date: 20050211
  Serious: No
  Sender: FDA-Public Use
  Company Number: US-GLAXOSMITHKLINE-A0516621A

PATIENT
  Age: 40 Year
  Sex: Female

DRUGS (7)
  1. WELLBUTRIN XL [Suspect]
     Indication: ILL-DEFINED DISORDER
     Dosage: 300MG PER DAY
     Route: 048
     Dates: start: 20040401
  2. AMBIEN [Concomitant]
  3. XANAX [Concomitant]
  4. SEROQUEL [Concomitant]
  5. COMBIVENT [Concomitant]
  6. QVAR 40 [Concomitant]
  7. XOPENEX [Concomitant]

REACTIONS (1)
  - TACHYCARDIA [None]
